FAERS Safety Report 18653841 (Version 1)
Quarter: 2020Q4

REPORT INFORMATION
  Report Type: Spontaneous
  Country: DE (occurrence: DE)
  Receive Date: 20201223
  Receipt Date: 20201223
  Transmission Date: 20210114
  Serious: Yes (Death, Life-Threatening, Hospitalization, Other)
  Sender: FDA-Public Use
  Company Number: DE-BAUSCH-BL-2020-036721

PATIENT
  Age: 44 Year
  Sex: Male

DRUGS (2)
  1. DIAZEPAM. [Suspect]
     Active Substance: DIAZEPAM
     Indication: SEIZURE
     Route: 065
  2. NORDAZEPAM [Suspect]
     Active Substance: NORDAZEPAM
     Indication: SEIZURE
     Route: 065

REACTIONS (6)
  - Pulmonary oedema [Fatal]
  - Pulmonary haemorrhage [Fatal]
  - Intentional product misuse [Fatal]
  - Brain oedema [Fatal]
  - Toxicity to various agents [Fatal]
  - Bronchial obstruction [Fatal]
